FAERS Safety Report 15549731 (Version 2)
Quarter: 2025Q3

REPORT INFORMATION
  Report Type: Spontaneous
  Country: GB (occurrence: GB)
  Receive Date: 20181025
  Receipt Date: 20250718
  Transmission Date: 20251021
  Serious: Yes (Death, Other)
  Sender: AUROBINDO
  Company Number: GB-AUROBINDO-AUR-APL-2018-051897

PATIENT
  Age: 68 Year
  Sex: Male

DRUGS (2)
  1. VORICONAZOLE [Suspect]
     Active Substance: VORICONAZOLE
     Indication: Aspergillus infection
     Route: 065
  2. TRANEXAMIC ACID [Concomitant]
     Active Substance: TRANEXAMIC ACID
     Indication: Haemoptysis
     Route: 065

REACTIONS (10)
  - Sepsis [Fatal]
  - Drug ineffective [Fatal]
  - Chronic pulmonary histoplasmosis [Unknown]
  - Pulmonary vasculitis [Unknown]
  - Pneumonia [Unknown]
  - Paracoccidioides infection [Unknown]
  - Mycobacterial infection [Unknown]
  - Pulmonary infarction [Unknown]
  - Coccidioidomycosis [Unknown]
  - Lung neoplasm malignant [Unknown]
